FAERS Safety Report 8616917-8 (Version None)
Quarter: 2012Q3

REPORT INFORMATION
  Report Type: 
  Country: None (occurrence: None)
  Receive Date: 20120823
  Receipt Date: 20120811
  Transmission Date: 20120928
  Serious: No
  Sender: FDA-Public Use
  Company Number: US-009507513-1208USA006080

PATIENT

DRUGS (4)
  1. CARBOPLATIN [Concomitant]
  2. COMPAZINE [Concomitant]
  3. GEMZAR [Concomitant]
  4. EMEND [Suspect]

REACTIONS (2)
  - NAUSEA [None]
  - DRUG INEFFECTIVE [None]
